FAERS Safety Report 5897185-7 (Version None)
Quarter: 2008Q3

REPORT INFORMATION
  Report Type: 
  Country: None (occurrence: None)
  Receive Date: 20080923
  Receipt Date: 20080908
  Transmission Date: 20090109
  Serious: Yes (Disabling)
  Sender: FDA-Public Use
  Company Number: 2008S1014993

PATIENT
  Age: 17 Year
  Sex: Female
  Weight: 43.0917 kg

DRUGS (6)
  1. METHYLPHENIDATE HYDROCHLORIDE [Suspect]
     Indication: ATTENTION DEFICIT/HYPERACTIVITY DISORDER
     Dosage: 20 MG; 4 TIMES A DAY; ORAL; 60 MG; DAILY; ORAL
     Route: 048
     Dates: start: 19960101, end: 20080501
  2. METHYLPHENIDATE HYDROCHLORIDE [Suspect]
     Indication: ATTENTION DEFICIT/HYPERACTIVITY DISORDER
     Dosage: 20 MG; 4 TIMES A DAY; ORAL; 60 MG; DAILY; ORAL
     Route: 048
     Dates: start: 20080501
  3. CLONIDINE HCL [Suspect]
     Indication: INITIAL INSOMNIA
     Dosage: 0.05 MG; EVERY MORNING; ORAL;  0.1MG; DAILY; ORAL
     Route: 048
     Dates: start: 20030710
  4. CLONIDINE HCL [Suspect]
     Indication: INITIAL INSOMNIA
     Dosage: 0.05 MG; EVERY MORNING; ORAL;  0.1MG; DAILY; ORAL
     Route: 048
     Dates: start: 20030710
  5. RISPERIDONE [Suspect]
     Indication: ABNORMAL BEHAVIOUR
     Dosage: 0.25 MG; TWICE A DAY; ORAL
     Route: 048
     Dates: start: 20060701, end: 20080228
  6. RISPERIDONE [Suspect]
     Indication: MOOD ALTERED
     Dosage: 0.25 MG; TWICE A DAY; ORAL
     Route: 048
     Dates: start: 20060701, end: 20080228

REACTIONS (11)
  - ABNORMAL BEHAVIOUR [None]
  - AFFECTIVE DISORDER [None]
  - COORDINATION ABNORMAL [None]
  - DISTURBANCE IN ATTENTION [None]
  - DRUG INTERACTION [None]
  - DYSKINESIA [None]
  - DYSTONIA [None]
  - MUSCULAR WEAKNESS [None]
  - MUSCULOSKELETAL STIFFNESS [None]
  - TARDIVE DYSKINESIA [None]
  - WEIGHT DECREASED [None]
